FAERS Safety Report 6019962-4 (Version None)
Quarter: 2008Q4

REPORT INFORMATION
  Report Type: 
  Country: None (occurrence: None)
  Receive Date: 20081224
  Receipt Date: 20081217
  Transmission Date: 20090506
  Serious: Yes (Hospitalization)
  Sender: FDA-Public Use
  Company Number: PHHO2008US07516

PATIENT
  Sex: Male

DRUGS (9)
  1. LOPRESSOR [Suspect]
     Dosage: UNK
  2. COREG [Suspect]
     Dosage: UNK
     Dates: end: 20080223
  3. PRAMIPEXOLE DIHYDROCHLORIDE [Concomitant]
  4. ZETIA [Concomitant]
  5. ZANTAC [Concomitant]
  6. NEXIUM [Concomitant]
  7. NORVASC [Concomitant]
  8. ASPIRIN [Concomitant]
  9. AMBIEN [Concomitant]

REACTIONS (12)
  - ASTHENIA [None]
  - CHEST PAIN [None]
  - COUGH [None]
  - DYSPNOEA [None]
  - FATIGUE [None]
  - FEELING ABNORMAL [None]
  - HEADACHE [None]
  - HYPERHIDROSIS [None]
  - HYPOAESTHESIA [None]
  - INCREASED UPPER AIRWAY SECRETION [None]
  - PARAESTHESIA [None]
  - SYNCOPE [None]
